FAERS Safety Report 6478057-6 (Version None)
Quarter: 2009Q4

REPORT INFORMATION
  Report Type: 
  Country: None (occurrence: None)
  Receive Date: 20091203
  Receipt Date: 20091203
  Transmission Date: 20100525
  Serious: Yes (Death)
  Sender: FDA-Public Use
  Company Number: None

PATIENT
  Sex: Male

DRUGS (12)
  1. REVLIMID [Suspect]
     Indication: MULTIPLE MYELOMA
     Dosage: 10MG DAILY 21D/28D ORALLY
     Route: 048
  2. DECADRON [Concomitant]
  3. DILAUDID [Concomitant]
  4. PROCRIT [Concomitant]
  5. FENTANYL [Concomitant]
  6. CITALOPRAM HYDROBROMIDE [Concomitant]
  7. TRAZODONE [Concomitant]
  8. LORAZEPAM [Concomitant]
  9. SEPTRA DS [Concomitant]
  10. ASPIRIN [Concomitant]
  11. PRILOSEC [Concomitant]
  12. GABAPENTIN [Concomitant]

REACTIONS (1)
  - NO ADVERSE EVENT [None]
